FAERS Safety Report 4777274-0 (Version None)
Quarter: 2005Q3

REPORT INFORMATION
  Report Type: 
  Country: None (occurrence: None)
  Receive Date: 20050923
  Receipt Date: 20050902
  Transmission Date: 20060218
  Serious: Yes (Death, Hospitalization)
  Sender: FDA-Public Use
  Company Number: 2005SE04997

PATIENT
  Age: 50 Year
  Sex: Female

DRUGS (3)
  1. QUETIAPINE FUMARATE [Suspect]
     Route: 048
     Dates: start: 20030101, end: 20040101
  2. QUETIAPINE FUMARATE [Suspect]
     Route: 048
     Dates: start: 20050101
  3. QUETIAPINE FUMARATE [Suspect]
     Route: 048
     Dates: start: 20050811, end: 20050811

REACTIONS (3)
  - COMPLETED SUICIDE [None]
  - OVERDOSE [None]
  - PULMONARY EMBOLISM [None]
